FAERS Safety Report 21328298 (Version 1)
Quarter: 2022Q3

REPORT INFORMATION
  Report Type: Report from Study
  Country: US (occurrence: US)
  Receive Date: 20220913
  Receipt Date: 20220913
  Transmission Date: 20221026
  Serious: Yes (Other)
  Sender: FDA-Public Use
  Company Number: US-ABBVIE-22K-163-4535352-00

PATIENT
  Sex: Female
  Weight: 61.290 kg

DRUGS (7)
  1. RINVOQ [Suspect]
     Active Substance: UPADACITINIB
     Indication: Ankylosing spondylitis
     Route: 048
     Dates: start: 202205
  2. RINVOQ [Suspect]
     Active Substance: UPADACITINIB
     Indication: Rheumatoid arthritis
  3. HUMIRA [Suspect]
     Active Substance: ADALIMUMAB
     Indication: Ankylosing spondylitis
     Route: 058
     Dates: start: 2020, end: 202112
  4. HUMIRA [Suspect]
     Active Substance: ADALIMUMAB
     Indication: Rheumatoid arthritis
     Route: 058
     Dates: start: 202201, end: 202204
  5. VALIUM [Concomitant]
     Active Substance: DIAZEPAM
     Indication: Sedative therapy
  6. FAMOTIDINE [Concomitant]
     Active Substance: FAMOTIDINE
     Indication: Bipolar disorder
  7. VITAMIN B2 [Concomitant]
     Active Substance: RIBOFLAVIN
     Indication: Vitamin B complex deficiency

REACTIONS (16)
  - Exostosis [Unknown]
  - Ingrowing nail [Recovered/Resolved]
  - Localised infection [Recovered/Resolved]
  - Suspected COVID-19 [Recovering/Resolving]
  - Tongue fungal infection [Recovered/Resolved]
  - Fungal oesophagitis [Recovered/Resolved]
  - Fungal oesophagitis [Recovered/Resolved]
  - Gout [Recovered/Resolved]
  - Oropharyngeal pain [Recovering/Resolving]
  - Wheezing [Recovering/Resolving]
  - Nasal congestion [Recovering/Resolving]
  - Nausea [Recovering/Resolving]
  - Headache [Recovering/Resolving]
  - Cough [Recovering/Resolving]
  - Nasopharyngitis [Recovering/Resolving]
  - Fungal pharyngitis [Recovered/Resolved]

NARRATIVE: CASE EVENT DATE: 20210101
